FAERS Safety Report 5375313-X (Version None)
Quarter: 2007Q2

REPORT INFORMATION
  Report Type: 
  Country: None (occurrence: None)
  Receive Date: 20070629
  Receipt Date: 20070615
  Transmission Date: 20071010
  Serious: Yes (Hospitalization)
  Sender: FDA-Public Use
  Company Number: JP-GENENTECH-243529

PATIENT
  Sex: Male

DRUGS (3)
  1. BEVACIZUMAB [Suspect]
     Indication: COLORECTAL CANCER
     Dosage: UNK, Q3W
     Route: 042
     Dates: start: 20060721, end: 20070608
  2. CAPECITABINE [Suspect]
     Indication: COLORECTAL CANCER
     Dosage: 1000 MG, UNK
     Route: 048
     Dates: start: 20060721, end: 20070608
  3. OXALIPLATIN [Suspect]
     Indication: COLORECTAL CANCER
     Dosage: UNK, Q3W
     Route: 042
     Dates: start: 20060721, end: 20070608

REACTIONS (1)
  - PYREXIA [None]
